FAERS Safety Report 7122788-1 (Version None)
Quarter: 2010Q4

REPORT INFORMATION
  Report Type: 
  Country: None (occurrence: None)
  Receive Date: 20101124
  Receipt Date: 20101116
  Transmission Date: 20110411
  Serious: Yes (Other)
  Sender: FDA-Public Use
  Company Number: RU-AMGEN-RUSNI2010004901

PATIENT

DRUGS (6)
  1. CINACALCET HYDROCHLORIDE [Suspect]
     Indication: HYPERPARATHYROIDISM SECONDARY
     Dosage: 30 MG, QD
     Route: 048
     Dates: start: 20100819, end: 20100904
  2. ERYTHROPOETIN [Concomitant]
     Indication: NEPHROGENIC ANAEMIA
     Dosage: 2000 IU, 3 TIMES/WK
     Route: 042
     Dates: start: 20040101
  3. ENOXAPARIN SODIUM [Concomitant]
     Indication: ANTICOAGULANT THERAPY
     Dosage: 40 MG, 3 TIMES/WK
     Route: 042
     Dates: start: 20040212
  4. FOLIC ACID [Concomitant]
     Indication: NEPHROGENIC ANAEMIA
     Dosage: 1 MG, UNK
     Route: 048
     Dates: start: 20040101
  5. SORBIFER                           /00023503/ [Concomitant]
     Indication: NEPHROGENIC ANAEMIA
     Dosage: 100 MG, BID
     Dates: start: 20040101
  6. CALCII CARBONAS [Concomitant]
     Indication: HYPERPARATHYROIDISM SECONDARY
     Dosage: 5 G, QD
     Route: 048
     Dates: start: 20060101

REACTIONS (3)
  - CHOLECYSTITIS [None]
  - CHOLELITHIASIS [None]
  - PANCREATITIS [None]
